FAERS Safety Report 10090443 (Version 1)
Quarter: 2014Q2

REPORT INFORMATION
  Report Type: Spontaneous
  Country: US (occurrence: US)
  Receive Date: 20140421
  Receipt Date: 20140421
  Transmission Date: 20141212
  Serious: Yes (Hospitalization, Other)
  Sender: FDA-Public Use
  Company Number: US-JNJFOC-20140414122

PATIENT
  Age: 78 Year
  Sex: Female

DRUGS (16)
  1. IMBRUVICA [Suspect]
     Indication: CHRONIC LYMPHOCYTIC LEUKAEMIA
     Route: 048
     Dates: start: 20140408, end: 20140408
  2. IMBRUVICA [Suspect]
     Indication: CHRONIC LYMPHOCYTIC LEUKAEMIA
     Route: 048
     Dates: start: 201404
  3. CALCIUM AND VITAMIN D [Concomitant]
  4. PREDNISONE [Concomitant]
     Dosage: ALTERNATE 1 MG AND 5 MG
  5. ZEBETA [Concomitant]
  6. PROLIA [Concomitant]
  7. EFUDEX [Concomitant]
     Indication: SKIN CANCER
     Route: 061
  8. VITAMIN B12 [Concomitant]
  9. VALTREX [Concomitant]
  10. NAMENDA [Concomitant]
  11. ROBAXIN [Concomitant]
  12. MULTIVITAMINS [Concomitant]
  13. LASIX [Concomitant]
  14. CELEBREX [Concomitant]
     Dates: start: 1994
  15. ALLOPURINOL [Concomitant]
  16. IMMUNOGLOBULIN [Concomitant]
     Route: 042

REACTIONS (2)
  - Adenocarcinoma of colon [Unknown]
  - Rectal haemorrhage [Not Recovered/Not Resolved]
